FAERS Safety Report 7426574-4 (Version None)
Quarter: 2011Q2

REPORT INFORMATION
  Report Type: 
  Country: None (occurrence: None)
  Receive Date: 20110420
  Receipt Date: 20110325
  Transmission Date: 20111010
  Serious: Yes (Hospitalization, Other)
  Sender: FDA-Public Use
  Company Number: US-BAYER-2011-007356

PATIENT
  Age: 43 Year
  Sex: Female
  Weight: 58.05 kg

DRUGS (6)
  1. IMITREX [Concomitant]
     Indication: MIGRAINE
  2. YAZ [Suspect]
     Indication: PREMENSTRUAL SYNDROME
     Dosage: UNK
     Dates: start: 20090601, end: 20091201
  3. JUNEL FE [Concomitant]
     Dosage: UNK
     Dates: start: 20100101
  4. OCELLA [Suspect]
     Indication: PREMENSTRUAL SYNDROME
     Dosage: UNK
     Dates: start: 20090601, end: 20091201
  5. IBUPROFEN [Concomitant]
     Indication: MIGRAINE
  6. ZOMIG [Concomitant]
     Indication: MIGRAINE

REACTIONS (11)
  - MIGRAINE [None]
  - ANXIETY [None]
  - GALLBLADDER DISORDER [None]
  - ABDOMINAL PAIN [None]
  - CHOLECYSTITIS [None]
  - ABDOMINAL PAIN UPPER [None]
  - METRORRHAGIA [None]
  - NAUSEA [None]
  - FATIGUE [None]
  - DIZZINESS [None]
  - PLEURAL EFFUSION [None]
